FAERS Safety Report 5645948-5 (Version None)
Quarter: 2008Q1

REPORT INFORMATION
  Report Type: 
  Country: None (occurrence: None)
  Receive Date: 20080229
  Receipt Date: 20080218
  Transmission Date: 20080703
  Serious: Yes (Death, Life-Threatening)
  Sender: FDA-Public Use
  Company Number: US-PFIZER INC-2008015475

PATIENT
  Sex: Female
  Weight: 57.2 kg

DRUGS (1)
  1. VFEND [Suspect]
     Indication: CELLULITIS

REACTIONS (2)
  - ADVERSE EVENT [None]
  - LEUKAEMIA [None]
